FAERS Safety Report 7548707-1 (Version None)
Quarter: 2011Q2

REPORT INFORMATION
  Report Type: 
  Country: None (occurrence: None)
  Receive Date: 20110608
  Receipt Date: 20110530
  Transmission Date: 20111010
  Serious: Yes (Disabling)
  Sender: FDA-Public Use
  Company Number: OSCN-NO-1009S-0251

PATIENT
  Sex: Female

DRUGS (24)
  1. CALCIUM CARBONATE [Concomitant]
  2. SODIUM POLYSTYRENE SULFONATE (RESONIUM)(SODIUM POLYSTYRENE SULFONATE) [Concomitant]
  3. GADOLINIUM (UNSPECIFIED) (GADOLINIUM) [Suspect]
     Indication: RENAL IMPAIRMENT
     Dosage: , SINGLE DOSE, INTRAVENOUS
     Route: 042
     Dates: start: 20000229, end: 20000229
  4. GADOLINIUM (UNSPECIFIED) (GADOLINIUM) [Suspect]
     Indication: RENAL IMPAIRMENT
     Dosage: , SINGLE DOSE, INTRAVENOUS
     Route: 042
     Dates: start: 20001030, end: 20001030
  5. TRAMADOL HYDROCHLORIDE (NOBLIGAN)(TRAMADOL HYDROCHLORIDE) [Concomitant]
  6. NIFEDIPINE (ADALAT)(NIFEDIPINE) [Concomitant]
  7. EPOETIN ALFA (EPREX)(EPOETIN ALFA) [Concomitant]
  8. PREDNISOLONE [Concomitant]
  9. CISAPRIDE (PREPULSID)(CISAPRIDE) [Concomitant]
  10. RAMIPRIL (RAMACE)(RAMIPRIL) [Concomitant]
  11. FUROSEMIDE (DIURAL)(FUROSEMIDE) [Concomitant]
  12. INSULIN HUMAN (ACTRAPID)(INSULIN HUMAN) [Concomitant]
  13. INSULIN INJECTION; ISOPHANE (INSULATARD) [Concomitant]
  14. METOCLOPRAMIDE (PRIMPERAN)(METOCLOPRAMIDE) [Concomitant]
  15. PIVAMPICILLIN HYDROCHLORIDE (PONDOCILLIN)(PIVAMPICILLIN HYDROCHLORIDE) [Concomitant]
  16. OMEPRAZOLE (LOSEC)(OMEPRAZOLE) [Concomitant]
  17. ALFACALCIDOL (ETALPHA)(ALFACALCIDOL) [Concomitant]
  18. CITALOPRAM (CTPRAMIL)(CITALOPRAM) [Concomitant]
  19. FERROUS SULPHATE (FERRODURETTER)(FERROUS SULFATE) [Concomitant]
  20. ACETYLSALICYLIC ACID (MAGNYL)(ACETYLSALICYLIC ACID) [Concomitant]
  21. DIPYRIDAMOLE (PERSANTIN)(DIPYRIDAMOLE) [Concomitant]
  22. PARACETAMOL (PANODIL)(PARACETAMOL) [Concomitant]
  23. CICLOSPORIN (SANDIMMUN NEORAL)(CICLOSPORIN) [Concomitant]
  24. METOPROLOL SUCCINATE (SELO-ZOK)(METOPROLOL SUCCINATE) [Concomitant]

REACTIONS (1)
  - NEPHROGENIC SYSTEMIC FIBROSIS [None]
